FAERS Safety Report 21329101 (Version 1)
Quarter: 2022Q3

REPORT INFORMATION
  Report Type: Spontaneous
  Country: US (occurrence: None)
  Receive Date: 20220912
  Receipt Date: 20220912
  Transmission Date: 20221027
  Serious: No
  Sender: FDA-Public Use
  Company Number: None

PATIENT
  Age: 70 Year
  Sex: Female
  Weight: 63 kg

DRUGS (4)
  1. ILUMYA [Suspect]
     Active Substance: TILDRAKIZUMAB-ASMN
     Indication: Psoriasis
     Route: 058
     Dates: start: 20220823
  2. ILUMYA [Suspect]
     Active Substance: TILDRAKIZUMAB-ASMN
     Indication: Psoriatic arthropathy
  3. COVID-19 VACCINE NOS [Suspect]
     Active Substance: COVID-19 VACCINE NOS
  4. ATENOLOL [Concomitant]
     Active Substance: ATENOLOL

REACTIONS (9)
  - Psoriasis [None]
  - Therapy non-responder [None]
  - Anxiety [None]
  - Panic disorder [None]
  - Rhinorrhoea [None]
  - Sinus disorder [None]
  - Diarrhoea [None]
  - Night sweats [None]
  - Nightmare [None]

NARRATIVE: CASE EVENT DATE: 20220823
